FAERS Safety Report 10543229 (Version 1)
Quarter: 2014Q4

REPORT INFORMATION
  Report Type: Spontaneous
  Country: US (occurrence: None)
  Receive Date: 20141024
  Receipt Date: 20141024
  Transmission Date: 20150529
  Serious: No
  Sender: FDA-Public Use
  Company Number: None

PATIENT
  Age: 57 Year
  Sex: Male
  Weight: 83.01 kg

DRUGS (2)
  1. ZIPRASIDONE [Suspect]
     Active Substance: ZIPRASIDONE
     Indication: DEPRESSION
     Dosage: 1 PILL
     Route: 048
     Dates: start: 20141020, end: 20141022
  2. ZIPRASIDONE [Suspect]
     Active Substance: ZIPRASIDONE
     Indication: PARANOIA
     Dosage: 1 PILL
     Route: 048
     Dates: start: 20141020, end: 20141022

REACTIONS (4)
  - Paranoia [None]
  - Product quality issue [None]
  - Product substitution issue [None]
  - Depression [None]

NARRATIVE: CASE EVENT DATE: 20141022
